FAERS Safety Report 5352525-2 (Version None)
Quarter: 2007Q2

REPORT INFORMATION
  Report Type: 
  Country: None (occurrence: None)
  Receive Date: 20070607
  Receipt Date: 20070607
  Transmission Date: 20071010
  Serious: Yes (Hospitalization)
  Sender: FDA-Public Use
  Company Number: None

PATIENT
  Age: 55 Year
  Sex: Male

DRUGS (1)
  1. CEFPODOXIME PROXETIL [Suspect]
     Indication: PERITONITIS
     Dosage: 200MG BID PO
     Route: 048
     Dates: start: 20070422, end: 20070515

REACTIONS (1)
  - DIARRHOEA [None]
